FAERS Safety Report 7096787-2 (Version None)
Quarter: 2010Q4

REPORT INFORMATION
  Report Type: 
  Country: None (occurrence: None)
  Receive Date: 20101111
  Receipt Date: 20101105
  Transmission Date: 20110411
  Serious: Yes (Other)
  Sender: FDA-Public Use
  Company Number: CA-GENENTECH-309303

PATIENT
  Age: 9 Year
  Sex: Female

DRUGS (8)
  1. RITUXAN [Suspect]
     Indication: WEGENER'S GRANULOMATOSIS
     Dosage: 375 MG/M2, 1/WEEK
  2. PREDNISONE [Suspect]
     Indication: WEGENER'S GRANULOMATOSIS
     Dosage: 2 MG/KG, QD
  3. PREDNISONE [Suspect]
     Dosage: 0.5 MG/KG, QD
  4. PREDNISONE [Suspect]
     Dosage: 0.3 MG/KG, QD
  5. MYCOPHENOLIC ACID [Suspect]
     Indication: WEGENER'S GRANULOMATOSIS
     Dosage: 28 MG/KG, QD
  6. CYCLOPHOSPHAMIDE [Suspect]
     Indication: WEGENER'S GRANULOMATOSIS
     Dosage: UNK
     Route: 042
  7. METHOTREXATE [Suspect]
     Indication: PRODUCT USED FOR UNKNOWN INDICATION
     Dosage: 13 MG/M2, 1/WEEK
     Route: 048
  8. COTRIM [Concomitant]
     Indication: INFECTION PROPHYLAXIS
     Dosage: 4 MG/KG, QD

REACTIONS (1)
  - PNEUMOCYSTIS JIROVECI PNEUMONIA [None]
